FAERS Safety Report 4373244-5 (Version None)
Quarter: 2004Q2

REPORT INFORMATION
  Report Type: 
  Country: None (occurrence: None)
  Receive Date: 20040608
  Receipt Date: 20040426
  Transmission Date: 20050107
  Serious: No
  Sender: FDA-Public Use
  Company Number: US-GLAXOSMITHKLINE-A0513589A

PATIENT

DRUGS (2)
  1. WELLBUTRIN [Suspect]
  2. BUPROPION HCL [Suspect]

REACTIONS (1)
  - MEDICATION ERROR [None]
